FAERS Safety Report 21751239 (Version 2)
Quarter: 2023Q1

REPORT INFORMATION
  Report Type: Report from Study
  Country: BR (occurrence: BR)
  Receive Date: 20221220
  Receipt Date: 20230101
  Transmission Date: 20230418
  Serious: Yes (Other)
  Sender: FDA-Public Use
  Company Number: BR-ABBVIE-4242939

PATIENT
  Sex: Male
  Weight: 76 kg

DRUGS (3)
  1. RINVOQ [Suspect]
     Active Substance: UPADACITINIB
     Indication: Dermatitis atopic
     Route: 048
     Dates: start: 20220908, end: 20221015
  2. RINVOQ [Suspect]
     Active Substance: UPADACITINIB
     Indication: Dermatitis atopic
     Dosage: FIRST ADMIN DATE: 2022
     Route: 048
     Dates: end: 202211
  3. WARFARIN SODIUM [Concomitant]
     Active Substance: WARFARIN SODIUM
     Indication: Product used for unknown indication

REACTIONS (7)
  - Holter valve insertion [Unknown]
  - Immunodeficiency [Unknown]
  - Viral infection [Unknown]
  - Herpes zoster [Unknown]
  - Coagulation test abnormal [Unknown]
  - General symptom [Not Recovered/Not Resolved]
  - Condition aggravated [Not Recovered/Not Resolved]
